FAERS Safety Report 8355200 (Version 2)
Quarter: 2013Q4

REPORT INFORMATION
  Report Type: Spontaneous
  Country: US (occurrence: US)
  Receive Date: 20120126
  Receipt Date: 20131226
  Transmission Date: 20140711
  Serious: Yes (Other)
  Sender: FDA-Public Use
  Company Number: US-BAYER-2012-006383

PATIENT
  Age: 51 Year
  Sex: Female

DRUGS (7)
  1. YAZ [Suspect]
     Dosage: UNK
     Dates: start: 200611, end: 201002
  2. ACTIVELLA [Concomitant]
     Dosage: 0.5 MG, QD
  3. XANAX [Concomitant]
     Dosage: 1 MG QID (FOUR TIMES
  4. WELLBUTRIN [Concomitant]
     Dosage: 150 BID (TWO TIMES DAILY)
  5. WELLBUTRIN [Concomitant]
     Dosage: 75 QD (EVERY DAY)
  6. CABERGOLINE [Concomitant]
     Dosage: ? TABLET PER WEEK
  7. ACIPHEX [Concomitant]
     Dosage: 20 MG, QD

REACTIONS (5)
  - Cholelithiasis [None]
  - Cholecystitis chronic [None]
  - Pain [None]
  - Injury [None]
  - Emotional distress [None]
